FAERS Safety Report 7778350-0 (Version None)
Quarter: 2011Q3

REPORT INFORMATION
  Report Type: 
  Country: None (occurrence: None)
  Receive Date: 20110926
  Receipt Date: 20110920
  Transmission Date: 20111222
  Serious: Yes (Other)
  Sender: FDA-Public Use
  Company Number: PHHO2011FR06323

PATIENT
  Sex: Male
  Weight: 95 kg

DRUGS (3)
  1. TASIGNA [Suspect]
     Indication: CHRONIC MYELOID LEUKAEMIA
     Dosage: 300 MG, BID
     Route: 048
     Dates: start: 20110201, end: 20110405
  2. TASIGNA [Suspect]
     Dosage: UNK
     Dates: start: 20110405, end: 20110406
  3. TASIGNA [Suspect]
     Dosage: UNK
     Dates: start: 20110407

REACTIONS (1)
  - ARTHROPATHY [None]
